FAERS Safety Report 19673712 (Version 1)
Quarter: 2021Q3

REPORT INFORMATION
  Report Type: Spontaneous
  Country: US (occurrence: US)
  Receive Date: 20210806
  Receipt Date: 20210806
  Transmission Date: 20211014
  Serious: Yes (Hospitalization)
  Sender: FDA-Public Use
  Company Number: None

PATIENT
  Age: 17 Year
  Sex: Male

DRUGS (1)
  1. ICATIBANT PFS 30MG/3ML 1PK [Suspect]
     Active Substance: ICATIBANT ACETATE
     Route: 058
     Dates: start: 202105

REACTIONS (1)
  - Hereditary angioedema [None]

NARRATIVE: CASE EVENT DATE: 20210805
